FAERS Safety Report 7549210-5 (Version None)
Quarter: 2011Q2

REPORT INFORMATION
  Report Type: 
  Country: None (occurrence: None)
  Receive Date: 20110615
  Receipt Date: 20110602
  Transmission Date: 20111010
  Serious: Yes (Other)
  Sender: FDA-Public Use
  Company Number: PHHY2011JP48891

PATIENT
  Age: 55 Year
  Sex: Female

DRUGS (1)
  1. ZOMETA [Suspect]
     Indication: METASTASES TO BONE
     Dosage: 4 MG PER ADMINISTRATION AT AN UNSPECIFIED INTERVAL
     Route: 041
     Dates: start: 20110513

REACTIONS (4)
  - ALTERED STATE OF CONSCIOUSNESS [None]
  - INTRACRANIAL PRESSURE INCREASED [None]
  - MENINGITIS [None]
  - MEMORY IMPAIRMENT [None]
